FAERS Safety Report 7584662-6 (Version None)
Quarter: 2011Q2

REPORT INFORMATION
  Report Type: 
  Country: None (occurrence: None)
  Receive Date: 20110630
  Receipt Date: 20110624
  Transmission Date: 20111010
  Serious: Yes (Hospitalization)
  Sender: FDA-Public Use
  Company Number: CA-ROCHE-763894

PATIENT
  Sex: Female
  Weight: 132 kg

DRUGS (12)
  1. ABILIFY [Concomitant]
  2. FLEXERIL [Concomitant]
  3. TOCILIZUMAB [Suspect]
     Indication: RHEUMATOID ARTHRITIS
     Dosage: INFUSION
     Route: 042
     Dates: start: 20101118
  4. FERROUS SULFATE TAB [Concomitant]
  5. VALPROATE SODIUM [Concomitant]
  6. CLONAZEPAM [Concomitant]
  7. METHOTREXATE [Concomitant]
  8. PRILOSEC [Concomitant]
  9. NAPROXEN [Concomitant]
  10. LIPITOR [Concomitant]
  11. ESCITALOPRAM [Concomitant]
  12. LAMICTAL [Concomitant]

REACTIONS (1)
  - SUICIDAL IDEATION [None]
